FAERS Safety Report 7150460-0 (Version None)
Quarter: 2010Q4

REPORT INFORMATION
  Report Type: 
  Country: None (occurrence: None)
  Receive Date: 20101210
  Receipt Date: 20101206
  Transmission Date: 20110411
  Serious: Yes (Hospitalization, Other)
  Sender: FDA-Public Use
  Company Number: PHHO2010DE16838

PATIENT
  Sex: Male

DRUGS (15)
  1. ALISKIREN [Suspect]
     Indication: CORONARY ARTERY DISEASE
     Dosage: CODE NOT BROKEN
     Route: 048
     Dates: start: 20100423, end: 20100502
  2. PLACEBO [Suspect]
     Indication: CORONARY ARTERY DISEASE
     Dosage: CODE NOT BROKEN
     Route: 048
     Dates: start: 20100503, end: 20101101
  3. BLINDED NO TREATMENT RECEIVED NOMED [Suspect]
     Indication: CORONARY ARTERY DISEASE
     Dosage: CODE NOT BROKEN
     Route: 048
     Dates: start: 20100503, end: 20101101
  4. PLACEBO [Suspect]
     Indication: CORONARY ARTERY DISEASE
     Dosage: CODE NOT BROKEN
     Route: 048
     Dates: start: 20100503, end: 20101101
  5. PLACEBO [Suspect]
     Dosage: NO TREATMENT
     Dates: start: 20101102, end: 20101103
  6. BLINDED NO TREATMENT RECEIVED NOMED [Suspect]
     Dosage: NO TREATMENT
     Dates: start: 20101102, end: 20101103
  7. PLACEBO [Suspect]
     Dosage: NO TREATMENT
     Dates: start: 20101102, end: 20101103
  8. PLACEBO [Suspect]
     Dosage: CODE NOT BROKEN
     Dates: start: 20101104
  9. BLINDED NO TREATMENT RECEIVED NOMED [Suspect]
     Dosage: CODE NOT BROKEN
     Dates: start: 20101104
  10. PLACEBO [Suspect]
     Dosage: CODE NOT BROKEN
     Dates: start: 20101104
  11. ESIDRIX [Suspect]
  12. AQUAPHOR TABLET [Suspect]
  13. DELIX [Suspect]
  14. METOHEXAL [Suspect]
  15. NORVASC [Suspect]

REACTIONS (2)
  - HYPOTENSION [None]
  - SYNCOPE [None]
